FAERS Safety Report 24065006 (Version 1)
Quarter: 2024Q3

REPORT INFORMATION
  Report Type: Spontaneous
  Country: US (occurrence: US)
  Receive Date: 20240709
  Receipt Date: 20240709
  Transmission Date: 20241016
  Serious: Yes (Hospitalization)
  Sender: BRISTOL MYERS SQUIBB
  Company Number: US-BRISTOL-MYERS SQUIBB COMPANY-2024-108224

PATIENT
  Age: 89 Year
  Sex: Male

DRUGS (1)
  1. LENALIDOMIDE [Suspect]
     Active Substance: LENALIDOMIDE
     Indication: Myelodysplastic syndrome
     Dosage: FREQUENCY: ONE CAPSULE EVERY 3 DAYS D1-21 EVERY 28 DAYS
     Route: 048
     Dates: start: 20230801, end: 20240501

REACTIONS (1)
  - Laboratory test abnormal [Recovering/Resolving]
